FAERS Safety Report 16791236 (Version 15)
Quarter: 2022Q2

REPORT INFORMATION
  Report Type: Report from Study
  Country: FR (occurrence: FR)
  Receive Date: 20190910
  Receipt Date: 20220406
  Transmission Date: 20220720
  Serious: Yes (Other)
  Sender: FDA-Public Use
  Company Number: FR-ABBVIE-19K-056-2917363-00

PATIENT
  Age: 70 Year
  Sex: Male
  Weight: 103 kg

DRUGS (24)
  1. VENETOCLAX [Suspect]
     Active Substance: VENETOCLAX
     Indication: Chronic lymphocytic leukaemia
     Route: 048
     Dates: start: 20190720, end: 20190726
  2. VENETOCLAX [Suspect]
     Active Substance: VENETOCLAX
     Route: 048
     Dates: start: 20190727, end: 20190809
  3. VENETOCLAX [Suspect]
     Active Substance: VENETOCLAX
     Route: 048
     Dates: start: 20190810, end: 20190819
  4. VENETOCLAX [Suspect]
     Active Substance: VENETOCLAX
     Route: 048
     Dates: start: 20190820, end: 20190821
  5. VENETOCLAX [Suspect]
     Active Substance: VENETOCLAX
     Route: 048
     Dates: start: 20190829, end: 20190904
  6. VENETOCLAX [Suspect]
     Active Substance: VENETOCLAX
     Route: 048
     Dates: start: 20190905, end: 20200727
  7. ALLOPURINOL [Concomitant]
     Active Substance: ALLOPURINOL
     Indication: Prophylaxis
     Dates: start: 2019
  8. ALLOPURINOL [Concomitant]
     Active Substance: ALLOPURINOL
     Indication: Prophylaxis
  9. TRULICITY [Concomitant]
     Active Substance: DULAGLUTIDE
     Indication: Diabetes mellitus
     Dates: start: 2019
  10. NOVORAPID [Concomitant]
     Active Substance: INSULIN ASPART
     Indication: Diabetes mellitus
     Dates: start: 2019
  11. TRESIBA [Concomitant]
     Active Substance: INSULIN DEGLUDEC
     Indication: Diabetes mellitus
     Dates: start: 2020
  12. ESOMEPRAZOLE [Concomitant]
     Active Substance: ESOMEPRAZOLE
     Indication: Oesophagitis
     Dates: start: 2019
  13. ESOMEPRAZOLE [Concomitant]
     Active Substance: ESOMEPRAZOLE
     Indication: Gastritis
  14. BISOPROLOL [Concomitant]
     Active Substance: BISOPROLOL
     Indication: Cardiac flutter
     Dates: start: 2019
  15. ELIQUIS [Concomitant]
     Active Substance: APIXABAN
     Indication: Cardiac flutter
     Dates: start: 2019
  16. CORDARONE [Concomitant]
     Active Substance: AMIODARONE HYDROCHLORIDE
     Indication: Cardiac flutter
     Dates: start: 2019
  17. SILODOSIN [Concomitant]
     Active Substance: SILODOSIN
     Indication: Prostatomegaly
     Dates: start: 2019
  18. AVODART [Concomitant]
     Active Substance: DUTASTERIDE
     Indication: Prostatomegaly
     Dates: start: 2019
  19. LEVOTHYROXINE [Concomitant]
     Active Substance: LEVOTHYROXINE
     Indication: Thyroid disorder
     Dates: start: 2019
  20. BACTRIM [Concomitant]
     Active Substance: SULFAMETHOXAZOLE\TRIMETHOPRIM
     Indication: Antifungal prophylaxis
     Dates: start: 20190812, end: 202005
  21. VALACYCLOVIR HYDROCHLORIDE [Concomitant]
     Active Substance: VALACYCLOVIR HYDROCHLORIDE
     Indication: Antiviral prophylaxis
     Dates: start: 20190812
  22. VALACYCLOVIR HYDROCHLORIDE [Concomitant]
     Active Substance: VALACYCLOVIR HYDROCHLORIDE
     Indication: Antiviral prophylaxis
  23. AERIUS [Concomitant]
     Indication: Product used for unknown indication
     Dates: start: 2019
  24. ATOVAQUONE [Concomitant]
     Active Substance: ATOVAQUONE
     Indication: Antifungal prophylaxis
     Dates: start: 202005

REACTIONS (17)
  - Acute kidney injury [Recovered/Resolved]
  - Dehydration [Recovered/Resolved]
  - Renal failure [Not Recovered/Not Resolved]
  - Richter^s syndrome [Not Recovered/Not Resolved]
  - Hyperthermia [Recovered/Resolved]
  - Bronchitis [Recovered/Resolved]
  - Hyperphosphataemia [Recovered/Resolved]
  - Pruritus [Recovered/Resolved]
  - Cell death [Recovered/Resolved]
  - Back pain [Recovered/Resolved]
  - Arthralgia [Recovered/Resolved]
  - Musculoskeletal pain [Recovered/Resolved]
  - Hyperkalaemia [Recovered/Resolved]
  - Hypocalcaemia [Recovered/Resolved]
  - Hyperuricaemia [Recovered/Resolved]
  - Neutropenia [Recovered/Resolved]
  - Diarrhoea [Recovered/Resolved]

NARRATIVE: CASE EVENT DATE: 20190720
